FAERS Safety Report 6249612-3 (Version None)
Quarter: 2009Q2

REPORT INFORMATION
  Report Type: 
  Country: None (occurrence: None)
  Receive Date: 20090625
  Receipt Date: 20090625
  Transmission Date: 20091009
  Serious: Yes (Hospitalization)
  Sender: FDA-Public Use
  Company Number: None

PATIENT
  Age: 76 Year
  Sex: Male

DRUGS (1)
  1. DAPTOMYCIN 400 MG [Suspect]
     Dosage: DAPTOMYCIN 400 MG Q 48 H IV
     Route: 042
     Dates: start: 20080519, end: 20080620

REACTIONS (8)
  - BLOOD CREATINE ABNORMAL [None]
  - CARDIAC FAILURE CONGESTIVE [None]
  - CLOSTRIDIUM DIFFICILE TOXIN TEST POSITIVE [None]
  - EOSINOPHILIC PNEUMONIA [None]
  - FLUID OVERLOAD [None]
  - PLEURAL EFFUSION [None]
  - PYREXIA [None]
  - WHITE BLOOD CELL COUNT INCREASED [None]
